FAERS Safety Report 20127008 (Version 2)
Quarter: 2022Q1

REPORT INFORMATION
  Report Type: Spontaneous
  Country: CZ (occurrence: CZ)
  Receive Date: 20211129
  Receipt Date: 20220330
  Transmission Date: 20220423
  Serious: Yes (Death, Other)
  Sender: FDA-Public Use
  Company Number: CZ-AMGEN-CZESP2021187237

PATIENT

DRUGS (3)
  1. CARFILZOMIB [Suspect]
     Active Substance: CARFILZOMIB
     Indication: Plasma cell myeloma
     Dosage: 20 MILLIGRAM/SQ. METER DAYS 1-2, THEN 56 MG/M2 GIVEN TWICE-WEEKLY 3 OF 4 WEEKS
     Route: 065
  2. DEXAMETHASONE [Suspect]
     Active Substance: DEXAMETHASONE
     Indication: Plasma cell myeloma
     Dosage: 20 MILLIGRAM, 2 TIMES/WK
     Route: 065
  3. ISATUXIMAB [Suspect]
     Active Substance: ISATUXIMAB
     Indication: Plasma cell myeloma
     Dosage: 10 MILLIGRAM/SQ. METER WEEKLY FOR 4 WEEKS THEN EVERY 2 WEEKS
     Route: 042

REACTIONS (3)
  - Plasma cell myeloma [Fatal]
  - Pneumonia [Fatal]
  - Adverse drug reaction [Unknown]
